FAERS Safety Report 8826926 (Version 3)
Quarter: 2012Q4

REPORT INFORMATION
  Report Type: 
  Country: US (occurrence: US)
  Receive Date: 20121005
  Receipt Date: 20121230
  Transmission Date: 20130627
  Serious: Yes (Hospitalization)
  Sender: FDA-Public Use
  Company Number: US-ALEXION PHARMACEUTICALS INC.-A201201871

PATIENT
  Age: 66 Year
  Sex: Female
  Weight: 45.4 kg

DRUGS (15)
  1. SOLIRIS 300MG [Suspect]
     Indication: PAROXYSMAL NOCTURNAL HAEMOGLOBINURIA
     Dosage: 600 mg, qw
     Route: 042
     Dates: start: 20120712, end: 20120809
  2. SOLIRIS 300MG [Suspect]
     Dosage: 900 mg, q2w
     Route: 042
     Dates: start: 20120809
  3. DILTIAZEM [Concomitant]
     Dosage: 30 mg, bid
     Route: 048
     Dates: start: 20100813
  4. ADVAIR DISKUS [Concomitant]
     Dosage: 1 DF, bid
     Dates: start: 20100222
  5. FOLIC ACID [Concomitant]
     Dosage: 1 DF, qd
     Route: 048
     Dates: start: 20120702
  6. GABAPENTIN [Concomitant]
     Dosage: 300 mg, bid
     Route: 048
     Dates: start: 20100630
  7. NEXIUM [Concomitant]
     Dosage: 40 mg, qd
     Route: 048
     Dates: start: 20120605
  8. PERCOCET [Concomitant]
     Indication: PAIN
     Dosage: 1 DF (5-325 mg), prn Q4-6H
     Route: 048
     Dates: start: 20101022
  9. OXYGEN [Concomitant]
     Dosage: UNK, as directed
     Dates: start: 20100222
  10. POTASSIUM CHLORIDE [Concomitant]
     Dosage: 20 mEq, qd
     Route: 048
  11. PREDNISONE [Concomitant]
     Dosage: 40 mg, qd
     Route: 048
     Dates: start: 20121214
  12. PREDNISONE [Concomitant]
     Dosage: 50 mg, qd
     Route: 048
     Dates: start: 20121129
  13. SPIRIVA [Concomitant]
     Dosage: 18 mcg as directed
     Dates: start: 20100222
  14. ALBUTEROL [Concomitant]
     Indication: DYSPNOEA
     Dosage: 2.5 mg, bid
  15. ALBUTEROL [Concomitant]
     Indication: WHEEZING

REACTIONS (5)
  - Thrombotic cerebral infarction [Recovered/Resolved]
  - Platelet count decreased [Unknown]
  - Arrhythmia [Unknown]
  - White blood cell count decreased [Unknown]
  - Haemoglobin decreased [Unknown]
